FAERS Safety Report 5323783-5 (Version None)
Quarter: 2007Q2

REPORT INFORMATION
  Report Type: 
  Country: None (occurrence: None)
  Receive Date: 20070514
  Receipt Date: 20070507
  Transmission Date: 20071010
  Serious: Yes (Life-Threatening, Hospitalization)
  Sender: FDA-Public Use
  Company Number: ES-AVENTIS-200712185EU

PATIENT
  Age: 77 Year
  Sex: Female

DRUGS (4)
  1. SEGURIL                            /00032601/ [Suspect]
     Route: 048
  2. ALDACTONE [Suspect]
     Route: 048
     Dates: end: 20060512
  3. KALPRESS [Suspect]
     Route: 048
     Dates: end: 20060512
  4. COROPRES [Suspect]
     Route: 048
     Dates: end: 20060512

REACTIONS (1)
  - DYSPNOEA [None]
